FAERS Safety Report 7380922-2 (Version None)
Quarter: 2011Q1

REPORT INFORMATION
  Report Type: 
  Country: None (occurrence: None)
  Receive Date: 20110329
  Receipt Date: 20110321
  Transmission Date: 20110831
  Serious: Yes (Hospitalization, Other)
  Sender: FDA-Public Use
  Company Number: PHHY2010US86422

PATIENT
  Sex: Female
  Weight: 75.9 kg

DRUGS (7)
  1. BENADRYL [Concomitant]
     Dosage: 25 MG, TID
  2. MOTRIN [Concomitant]
     Dosage: 800 MG, Q8H
     Route: 048
  3. PRILOSEC [Concomitant]
     Dosage: 25 MG, QD
     Route: 048
  4. COMPAZINE [Concomitant]
     Dosage: 10 MG
     Route: 048
  5. FOLIC ACID [Concomitant]
     Dosage: 1 MG, QD
     Route: 048
  6. EXJADE [Suspect]
     Indication: IRON OVERLOAD
     Dosage: 2500 MG, QD
     Route: 048
     Dates: start: 20060310
  7. HYDREA [Concomitant]
     Dosage: 2000 MG, QD
     Route: 048

REACTIONS (7)
  - SICKLE CELL ANAEMIA WITH CRISIS [None]
  - HYPOKALAEMIA [None]
  - WHITE BLOOD CELL COUNT INCREASED [None]
  - CHEST PAIN [None]
  - ARTHRALGIA [None]
  - ABDOMINAL PAIN [None]
  - PAIN IN EXTREMITY [None]
